FAERS Safety Report 8831244 (Version 1)
Quarter: 2012Q4

REPORT INFORMATION
  Report Type: 
  Country: JP (occurrence: JP)
  Receive Date: 20121009
  Receipt Date: 20121009
  Transmission Date: 20130627
  Serious: Yes (Other)
  Sender: FDA-Public Use
  Company Number: PHHY2012JP087411

PATIENT

DRUGS (2)
  1. NEORAL [Suspect]
     Route: 048
  2. ANABOLIC STEROIDS [Concomitant]

REACTIONS (1)
  - Glaucoma [Unknown]
